FAERS Safety Report 20582421 (Version 2)
Quarter: 2022Q1

REPORT INFORMATION
  Report Type: Report from Study
  Country: US (occurrence: US)
  Receive Date: 20220311
  Receipt Date: 20220314
  Transmission Date: 20220423
  Serious: Yes (Hospitalization)
  Sender: FDA-Public Use
  Company Number: US-ORPHANEU-2022000901

PATIENT

DRUGS (1)
  1. CARBAGLU [Suspect]
     Active Substance: CARGLUMIC ACID
     Indication: Hyperglycinaemia
     Dosage: 200 MILLIGRAM, TID

REACTIONS (3)
  - Haemorrhage [Recovering/Resolving]
  - Vomiting [Recovering/Resolving]
  - Device use confusion [Recovered/Resolved]
